FAERS Safety Report 7492965-9 (Version None)
Quarter: 2011Q2

REPORT INFORMATION
  Report Type: 
  Country: None (occurrence: None)
  Receive Date: 20110520
  Receipt Date: 20110509
  Transmission Date: 20111010
  Serious: Yes (Hospitalization, Other)
  Sender: FDA-Public Use
  Company Number: US-JNJFOC-20110505392

PATIENT
  Sex: Female
  Weight: 54.43 kg

DRUGS (8)
  1. FENTANYL [Suspect]
     Indication: PAIN
     Route: 062
     Dates: start: 20110401, end: 20110401
  2. FENTANYL [Suspect]
     Route: 062
     Dates: start: 20020101, end: 20110401
  3. ZESTRIL [Concomitant]
     Indication: HYPERTENSION
     Route: 048
     Dates: start: 20110101
  4. KLONOPIN [Concomitant]
     Indication: SEDATIVE THERAPY
     Dosage: 1 MG AS NEEDED
     Route: 048
     Dates: start: 20060101
  5. NORVASC [Concomitant]
     Indication: HYPERTENSION
     Route: 048
     Dates: start: 20020101
  6. AMBIEN [Concomitant]
     Indication: SLEEP DISORDER
     Route: 048
     Dates: start: 20030101
  7. FENTANYL CITRATE [Suspect]
     Indication: PAIN
     Route: 062
     Dates: start: 20110401, end: 20110401
  8. SYNTHROID [Concomitant]
     Indication: THYROID DISORDER
     Route: 048
     Dates: start: 19910101

REACTIONS (4)
  - WITHDRAWAL SYNDROME [None]
  - ATRIAL FIBRILLATION [None]
  - LYME DISEASE [None]
  - WEIGHT DECREASED [None]
